FAERS Safety Report 9096247 (Version 2)
Quarter: 2013Q2

REPORT INFORMATION
  Report Type: Spontaneous
  Country: FR (occurrence: FR)
  Receive Date: 20130207
  Receipt Date: 20130425
  Transmission Date: 20140414
  Serious: Yes (Hospitalization)
  Sender: FDA-Public Use
  Company Number: FR-BRISTOL-MYERS SQUIBB COMPANY-17336298

PATIENT
  Age: 71 Year
  Sex: Male
  Weight: 105 kg

DRUGS (5)
  1. COAPROVEL TABS [Suspect]
     Route: 048
  2. METFORMIN HCL [Suspect]
     Route: 048
  3. BI-PROFENID [Suspect]
     Route: 048
  4. COLCHIMAX [Suspect]
     Route: 048
  5. DIFFU-K [Suspect]
     Route: 048

REACTIONS (1)
  - Renal failure [Recovered/Resolved]
